FAERS Safety Report 9697853 (Version 3)
Quarter: 2014Q1

REPORT INFORMATION
  Report Type: Spontaneous
  Country: DE (occurrence: None)
  Receive Date: 20131118
  Receipt Date: 20140218
  Transmission Date: 20141002
  Serious: Yes (Death, Hospitalization)
  Sender: FDA-Public Use
  Company Number: DE-JNJFOC-20131105689

PATIENT
  Age: 75 Year
  Sex: Male
  Weight: 85 kg

DRUGS (8)
  1. DACOGEN [Suspect]
     Indication: MYELODYSPLASTIC SYNDROME
     Route: 042
     Dates: start: 20130808, end: 20130913
  2. VALSARTAN (VALSARTAN) UNSPECIFIED [Concomitant]
  3. ACETYL SALICYLIC ACID (ACETYLSALICYLIC ACID) UNSPECIFIED [Concomitant]
  4. BISOPROLOL (BISOPROLOL)  UNSPECIFIED [Concomitant]
  5. ALLOPURIONOL (ALLOPURIONOL) UNSPECIFIED) [Concomitant]
  6. PANTOZOL (PANTOPRAZOLE SODIUM) UNSPECIFIED? [Concomitant]
  7. TOREM (TORASEMIDE) UNSPECIFIED [Concomitant]
  8. AMLODIPINE (AMLODIPINE) UNSPECIFIED [Concomitant]

REACTIONS (12)
  - Aspergillus infection [None]
  - Abscess [None]
  - Neutropenia [None]
  - Infection [None]
  - Renal cyst [None]
  - Left ventricular hypertrophy [None]
  - Diastolic dysfunction [None]
  - Tricuspid valve incompetence [None]
  - Mitral valve incompetence [None]
  - Aortic valve incompetence [None]
  - Pleural effusion [None]
  - Ascites [None]
